FAERS Safety Report 8892279 (Version 1)
Quarter: 2012Q4

REPORT INFORMATION
  Report Type: Spontaneous
  Country: GB (occurrence: None)
  Receive Date: 20121101
  Receipt Date: 20121101
  Transmission Date: 20130627
  Serious: Yes (Hospitalization)
  Sender: FDA-Public Use
  Company Number: 2012P1061274

PATIENT
  Age: 62 Year
  Sex: Male

DRUGS (2)
  1. FENTANYL [Suspect]
     Indication: SEDATION
     Route: 042
     Dates: start: 20120925, end: 20120925
  2. MIDAZOLAM [Concomitant]

REACTIONS (1)
  - Grand mal convulsion [None]
